FAERS Safety Report 20008800 (Version 3)
Quarter: 2022Q2

REPORT INFORMATION
  Report Type: Spontaneous
  Country: JP (occurrence: JP)
  Receive Date: 20211028
  Receipt Date: 20220415
  Transmission Date: 20220721
  Serious: Yes (Hospitalization, Other)
  Sender: FDA-Public Use
  Company Number: JP-PFIZER INC-202101395398

PATIENT
  Age: 9 Decade
  Sex: Male

DRUGS (6)
  1. EPLERENONE [Suspect]
     Active Substance: EPLERENONE
     Indication: Cardiac failure chronic
     Dosage: 50 MG
  2. CARVEDILOL [Suspect]
     Active Substance: CARVEDILOL
     Indication: Cardiac failure acute
     Dosage: 20 MG, DAILY
  3. CARVEDILOL [Suspect]
     Active Substance: CARVEDILOL
     Dosage: 10 MG, DAILY
  4. SACUBITRIL\VALSARTAN [Suspect]
     Active Substance: SACUBITRIL\VALSARTAN
     Indication: Cardiac failure acute
     Dosage: 150 MG
  5. FUROSEMIDE [Suspect]
     Active Substance: FUROSEMIDE
     Indication: Cardiac failure acute
     Dosage: 40 MG, DAILY
  6. FUROSEMIDE [Suspect]
     Active Substance: FUROSEMIDE
     Dosage: 30 MG, DAILY

REACTIONS (2)
  - Cardiac failure chronic [Recovering/Resolving]
  - Bradycardia [Recovering/Resolving]
